FAERS Safety Report 9324907 (Version 1)
Quarter: 2013Q2

REPORT INFORMATION
  Report Type: Spontaneous
  Country: GB (occurrence: GB)
  Receive Date: 20130603
  Receipt Date: 20130603
  Transmission Date: 20140414
  Serious: Yes (Death, Hospitalization)
  Sender: FDA-Public Use
  Company Number: PHHY2013GB055727

PATIENT
  Age: 2 Year
  Sex: Female

DRUGS (2)
  1. CO-AMOXICLAV [Suspect]
  2. AZITHROMYCIN [Suspect]

REACTIONS (6)
  - Pulmonary haemorrhage [Fatal]
  - Drug reaction with eosinophilia and systemic symptoms [Unknown]
  - Erythema multiforme [Unknown]
  - Face oedema [Unknown]
  - Eosinophilia [Unknown]
  - Hepatic function abnormal [Unknown]
